FAERS Safety Report 4831256-9 (Version None)
Quarter: 2005Q4

REPORT INFORMATION
  Report Type: 
  Country: None (occurrence: None)
  Receive Date: 20051118
  Receipt Date: 20051109
  Transmission Date: 20060501
  Serious: Yes (Death)
  Sender: FDA-Public Use
  Company Number: US-JNJFOC-20051103312

PATIENT
  Sex: Male
  Weight: 77.11 kg

DRUGS (3)
  1. PEPCID AC [Suspect]
     Route: 048
  2. PEPCID AC [Suspect]
     Route: 048
  3. NITROGLYCERIN [Concomitant]

REACTIONS (1)
  - CORONARY ARTERY THROMBOSIS [None]
